FAERS Safety Report 5487331-1 (Version None)
Quarter: 2007Q4

REPORT INFORMATION
  Report Type: 
  Country: None (occurrence: None)
  Receive Date: 20071015
  Receipt Date: 20070928
  Transmission Date: 20080405
  Serious: Yes (Hospitalization)
  Sender: FDA-Public Use
  Company Number: 8027302

PATIENT
  Age: 34 Year
  Sex: Male

DRUGS (3)
  1. PREDNISOLONE [Suspect]
  2. AZATHIOPRINE [Suspect]
     Indication: IMMUNOSUPPRESSANT DRUG THERAPY
     Dosage: 50 MG 2/D
  3. MESALAZINE [Concomitant]

REACTIONS (3)
  - CYTOMEGALOVIRUS COLITIS [None]
  - HEPATITIS [None]
  - LEUKOPENIA [None]
